FAERS Safety Report 4477419-6 (Version None)
Quarter: 2004Q4

REPORT INFORMATION
  Report Type: 
  Country: None (occurrence: None)
  Receive Date: 20041013
  Receipt Date: 20041006
  Transmission Date: 20050328
  Serious: Yes (Hospitalization)
  Sender: FDA-Public Use
  Company Number: 2004-09-0456

PATIENT
  Age: 66 Year
  Sex: Female
  Weight: 50 kg

DRUGS (6)
  1. TEMODAL [Suspect]
     Indication: GLIOBLASTOMA MULTIFORME
     Dosage: 110 MG QD ORAL
     Route: 048
     Dates: start: 20040817, end: 20040904
  2. PHENYTOIN [Suspect]
  3. RADIATION THERAPY [Suspect]
     Indication: GLIOBLASTOMA MULTIFORME
     Dosage: UNKNOWN X-RAY THERAPY
     Dates: start: 20040818, end: 20040906
  4. DEXAMETHASONE [Suspect]
     Indication: BRAIN OEDEMA
     Dosage: 4 MG TID-QD* ORAL
     Route: 048
     Dates: start: 20040802
  5. PIRETANIDE [Concomitant]
  6. ENALAPRIL MALEATE [Concomitant]

REACTIONS (12)
  - ANOREXIA [None]
  - CONJUNCTIVITIS [None]
  - DRUG INTERACTION [None]
  - DYSPHAGIA [None]
  - GINGIVITIS [None]
  - HYPERSENSITIVITY [None]
  - MIDDLE EAR DISORDER [None]
  - MUCOSAL INFLAMMATION [None]
  - NAUSEA [None]
  - OTORRHOEA [None]
  - STEVENS-JOHNSON SYNDROME [None]
  - STOMATITIS [None]
